FAERS Safety Report 21086271 (Version 8)
Quarter: 2023Q2

REPORT INFORMATION
  Report Type: Report from Study
  Country: US (occurrence: US)
  Receive Date: 20220715
  Receipt Date: 20230408
  Transmission Date: 20230721
  Serious: Yes (Other)
  Sender: FDA-Public Use
  Company Number: US-002147023-NVSC2022US160232

PATIENT
  Age: 54 Year
  Sex: Female
  Weight: 72.57 kg

DRUGS (13)
  1. COSENTYX [Suspect]
     Active Substance: SECUKINUMAB
     Indication: Psoriatic arthropathy
     Dosage: 150 MG, QMO (EVERY FOUR WEEKS)
     Route: 058
  2. COSENTYX [Suspect]
     Active Substance: SECUKINUMAB
     Dosage: 150 MG, Q2W
     Route: 058
  3. COSENTYX [Suspect]
     Active Substance: SECUKINUMAB
     Dosage: 300 MG, QMO
     Route: 058
  4. CLOBETASOL PROPIONATE [Concomitant]
     Active Substance: CLOBETASOL PROPIONATE
     Indication: Product used for unknown indication
     Dosage: UNK, QMO (EXTERNAL SOLUTION 28 DAYS, O REFILLS)
     Route: 065
  5. MELATONIN [Concomitant]
     Active Substance: MELATONIN
     Indication: Product used for unknown indication
     Dosage: UNK (0 DAYS, O REFILLS) (CVS MELATONIN)
     Route: 048
  6. GABAPENTIN [Concomitant]
     Active Substance: GABAPENTIN
     Indication: Product used for unknown indication
     Dosage: UNK (90 DAYS, O REFILLS)
     Route: 048
  7. HYDROCORTISONE [Concomitant]
     Active Substance: HYDROCORTISONE
     Indication: Product used for unknown indication
     Dosage: UNK (EXTERNAL CREAM 14 DAYS, O REFILLS)
     Route: 065
  8. KETOCONAZOLE [Concomitant]
     Active Substance: KETOCONAZOLE
     Indication: Product used for unknown indication
     Dosage: UNK (30 DAYS, O REFILLS)
     Route: 065
  9. MAGNESIUM [Concomitant]
     Active Substance: MAGNESIUM
     Indication: Product used for unknown indication
     Dosage: UNK(0 DAYS, 0 REFILLS)
     Route: 048
  10. OXCARBAZEPINE [Concomitant]
     Active Substance: OXCARBAZEPINE
     Indication: Product used for unknown indication
     Dosage: UNK (ORAL TABLET 90 DAYS, O REFILLS)
     Route: 048
  11. PREDNISONE [Concomitant]
     Active Substance: PREDNISONE
     Indication: Product used for unknown indication
     Dosage: 1 DOSAGE FORM, BID (1 BY MOUTH TWICE A DAY...TAKE WITH FOOD, 30 DAYS, I REFILLS)
     Route: 048
  12. PROPRANOLOL [Concomitant]
     Active Substance: PROPRANOLOL HYDROCHLORIDE
     Indication: Product used for unknown indication
     Dosage: UNK (EXTENDED RELEASE 24 HOUR 90 DAYS, O REFILLS)
     Route: 048
  13. CLONAZEPAM [Concomitant]
     Active Substance: CLONAZEPAM
     Indication: Product used for unknown indication
     Dosage: UNK (30 DAYS, 0 REFILLS)
     Route: 048

REACTIONS (14)
  - Psoriatic arthropathy [Unknown]
  - Oedema peripheral [Unknown]
  - Musculoskeletal stiffness [Unknown]
  - Arthralgia [Not Recovered/Not Resolved]
  - Faeces discoloured [Unknown]
  - Stress [Unknown]
  - Back pain [Unknown]
  - Joint space narrowing [Unknown]
  - Exostosis [Unknown]
  - Osteoarthritis [Unknown]
  - Heart sounds abnormal [Unknown]
  - Psoriasis [Unknown]
  - Skin plaque [Unknown]
  - Off label use [Unknown]

NARRATIVE: CASE EVENT DATE: 20220526
